FAERS Safety Report 4950851-X (Version None)
Quarter: 2006Q1

REPORT INFORMATION
  Report Type: 
  Country: None (occurrence: None)
  Receive Date: 20060315
  Receipt Date: 20060307
  Transmission Date: 20060701
  Serious: Yes (Life-Threatening, Other)
  Sender: FDA-Public Use
  Company Number: T200600035

PATIENT
  Age: 75 Year
  Sex: Female

DRUGS (1)
  1. OPTIRAY 240 [Suspect]
     Indication: COMPUTERISED TOMOGRAM
     Dosage: 100 ML SINGLE INTRAVENOUS
     Route: 042
     Dates: start: 20060303, end: 20060303

REACTIONS (3)
  - ANAPHYLACTIC SHOCK [None]
  - LOSS OF CONSCIOUSNESS [None]
  - PROCEDURAL COMPLICATION [None]
